FAERS Safety Report 6449131-5 (Version None)
Quarter: 2009Q4

REPORT INFORMATION
  Report Type: 
  Country: None (occurrence: None)
  Receive Date: 20091116
  Receipt Date: 20091102
  Transmission Date: 20100525
  Serious: Yes (Hospitalization)
  Sender: FDA-Public Use
  Company Number: 2009AL006997

PATIENT
  Sex: Female

DRUGS (2)
  1. FEVERALL [Suspect]
     Dosage: 12 GM  RECTAL SUPPOSITORIES
     Route: 054
  2. QUETIAPINE [Concomitant]

REACTIONS (6)
  - COMA SCALE ABNORMAL [None]
  - ELECTROCARDIOGRAM QT PROLONGED [None]
  - HYPERLIPIDAEMIA [None]
  - HYPOTENSION [None]
  - OVERDOSE [None]
  - SINUS TACHYCARDIA [None]
